FAERS Safety Report 4332908-X (Version None)
Quarter: 2004Q1

REPORT INFORMATION
  Report Type: 
  Country: None (occurrence: None)
  Receive Date: 20040330
  Receipt Date: 20040322
  Transmission Date: 20041129
  Serious: Yes (Death, Hospitalization)
  Sender: FDA-Public Use
  Company Number: US-JNJFOC-20040201194

PATIENT
  Age: 80 Year
  Sex: Female

DRUGS (2)
  1. DURAGESIC [Suspect]
     Indication: CANCER PAIN
     Dosage: SEE IMAGE
     Route: 062
     Dates: end: 20040123
  2. DURAGESIC [Suspect]
     Indication: CANCER PAIN
     Dosage: SEE IMAGE
     Route: 062
     Dates: start: 20031201

REACTIONS (2)
  - MALIGNANT MELANOMA [None]
  - MALIGNANT NEOPLASM PROGRESSION [None]
